FAERS Safety Report 5855119-5 (Version None)
Quarter: 2008Q3

REPORT INFORMATION
  Report Type: 
  Country: None (occurrence: None)
  Receive Date: 20080822
  Receipt Date: 20080710
  Transmission Date: 20090109
  Serious: No
  Sender: FDA-Public Use
  Company Number: US-ABBOTT-08P-163-0462113-00

PATIENT
  Sex: Female
  Weight: 91.254 kg

DRUGS (7)
  1. SYNTHROID [Suspect]
     Indication: HYPOTHYROIDISM
     Route: 048
     Dates: start: 20010101, end: 20080101
  2. SYNTHROID [Suspect]
     Route: 048
     Dates: start: 20080624
  3. SYNTHROID [Suspect]
     Dosage: ARMOUR SYNTHROID
     Dates: start: 20080101, end: 20080623
  4. MULTI-VITAMINS [Concomitant]
     Indication: VITAMIN SUPPLEMENTATION
     Route: 048
  5. VITAMIN B COMPLEX CAP [Concomitant]
     Indication: VITAMIN SUPPLEMENTATION
     Route: 048
     Dates: start: 20070701
  6. FISH OIL [Concomitant]
     Indication: VITAMIN SUPPLEMENTATION
     Route: 048
  7. CYANOCOBALAMIN [Concomitant]
     Indication: VITAMIN SUPPLEMENTATION
     Route: 060

REACTIONS (5)
  - BLOOD GLUCOSE INCREASED [None]
  - BLOOD THYROID STIMULATING HORMONE INCREASED [None]
  - FATIGUE [None]
  - INSOMNIA [None]
  - NAUSEA [None]
